FAERS Safety Report 7417748-7 (Version None)
Quarter: 2011Q2

REPORT INFORMATION
  Report Type: 
  Country: None (occurrence: None)
  Receive Date: 20110412
  Receipt Date: 20110412
  Transmission Date: 20111010
  Serious: Yes (Hospitalization)
  Sender: FDA-Public Use
  Company Number: None

PATIENT
  Age: 87 Year
  Sex: Male
  Weight: 88 kg

DRUGS (1)
  1. HEPARIN [Suspect]
     Indication: CARDIAC FAILURE CONGESTIVE
     Dosage: 10000 IU TID IM
     Route: 030
     Dates: start: 20110214, end: 20110301

REACTIONS (1)
  - THROMBOCYTOPENIA [None]
